FAERS Safety Report 6993687 (Version 3)
Quarter: 2019Q1

REPORT INFORMATION
  Report Type: Spontaneous
  Country: GB (occurrence: GB)
  Receive Date: 20090513
  Receipt Date: 20190307
  Transmission Date: 20190418
  Serious: Yes (Disabling, Other)
  Sender: FDA-Public Use
  Company Number: GB-PFIZER INC-2009207625

PATIENT
  Age: 33 Year
  Sex: Female
  Weight: 75 kg

DRUGS (2)
  1. DOVOBET [Concomitant]
     Active Substance: BETAMETHASONE\CALCIPOTRIENE
     Indication: PSORIASIS
     Dosage: UNK MG, 2X/DAY
     Dates: start: 20080725
  2. CHAMPIX [Suspect]
     Active Substance: VARENICLINE TARTRATE
     Indication: EX-TOBACCO USER
     Dosage: 1 MG, 2X/DAY
     Route: 048
     Dates: start: 20090311, end: 20090416

REACTIONS (2)
  - Paranoia [Recovered/Resolved]
  - Depression [Recovered/Resolved]

NARRATIVE: CASE EVENT DATE: 20090408
